FAERS Safety Report 5137119-6 (Version None)
Quarter: 2006Q4

REPORT INFORMATION
  Report Type: 
  Country: None (occurrence: None)
  Receive Date: 20061030
  Receipt Date: 20040105
  Transmission Date: 20070319
  Serious: No
  Sender: FDA-Public Use
  Company Number: US-GLAXOSMITHKLINE-A0491303A

PATIENT
  Age: 74 Year
  Sex: Female

DRUGS (7)
  1. ADVAIR HFA [Suspect]
     Indication: ASTHMA
     Dosage: 1PUFF TWICE PER DAY
     Route: 055
  2. SEREVENT [Suspect]
     Indication: ASTHMA
     Dosage: 2MCG TWICE PER DAY
     Route: 055
  3. ATROVENT [Concomitant]
  4. ALBUTEROL [Concomitant]
  5. EVISTA [Concomitant]
  6. OSCAL [Concomitant]
  7. CENTRUM SILVER [Concomitant]

REACTIONS (2)
  - DYSPHONIA [None]
  - HEART RATE INCREASED [None]
